FAERS Safety Report 18599240 (Version 2)
Quarter: 2021Q2

REPORT INFORMATION
  Report Type: Spontaneous
  Country: US (occurrence: US)
  Receive Date: 20201210
  Receipt Date: 20210512
  Transmission Date: 20210717
  Serious: No
  Sender: FDA-Public Use
  Company Number: US-SA-2020SA350089

PATIENT
  Age: 62 Year
  Sex: Female

DRUGS (14)
  1. FLUTICASONE PROPIONATE. [Concomitant]
     Active Substance: FLUTICASONE PROPIONATE
  2. CLOBETASOL PROPIONATE. [Concomitant]
     Active Substance: CLOBETASOL PROPIONATE
  3. HUMIRA [Concomitant]
     Active Substance: ADALIMUMAB
  4. FOLIC ACID. [Concomitant]
     Active Substance: FOLIC ACID
  5. KETOCONAZOLE. [Concomitant]
     Active Substance: KETOCONAZOLE
  6. LEVOTHYROXINE SODIUM. [Concomitant]
     Active Substance: LEVOTHYROXINE SODIUM
  7. METHOTREXATE. [Concomitant]
     Active Substance: METHOTREXATE
  8. FAMOTIDINE. [Concomitant]
     Active Substance: FAMOTIDINE
  9. ALPRAZOLAM. [Concomitant]
     Active Substance: ALPRAZOLAM
  10. FLUOXETINE [Concomitant]
     Active Substance: FLUOXETINE HYDROCHLORIDE
  11. DUPIXENT [Suspect]
     Active Substance: DUPILUMAB
     Indication: DERMATITIS ATOPIC
     Dosage: 300 MG, QOW
     Route: 058
     Dates: end: 2020
  12. UNITHROID [Concomitant]
     Active Substance: LEVOTHYROXINE SODIUM
  13. TRAZODONE [Concomitant]
     Active Substance: TRAZODONE HYDROCHLORIDE
  14. OXYBUTYNIN CHLORIDE. [Concomitant]
     Active Substance: OXYBUTYNIN CHLORIDE

REACTIONS (1)
  - Dermatitis atopic [Unknown]

NARRATIVE: CASE EVENT DATE: 2020
